FAERS Safety Report 22208870 (Version 1)
Quarter: 2023Q2

REPORT INFORMATION
  Report Type: Spontaneous
  Country: FR (occurrence: FR)
  Receive Date: 20230413
  Receipt Date: 20230413
  Transmission Date: 20230721
  Serious: Yes (Hospitalization)
  Sender: FDA-Public Use
  Company Number: None

PATIENT
  Age: 65 Year
  Sex: Male

DRUGS (1)
  1. NAPROXEN [Suspect]
     Active Substance: NAPROXEN
     Indication: Back pain
     Dosage: UNKNOWN
     Route: 065
     Dates: start: 20230220, end: 20230224

REACTIONS (1)
  - Pseudoporphyria [Recovering/Resolving]

NARRATIVE: CASE EVENT DATE: 20230224
